FAERS Safety Report 7040286-0 (Version None)
Quarter: 2010Q4

REPORT INFORMATION
  Report Type: 
  Country: None (occurrence: None)
  Receive Date: 20101012
  Receipt Date: 20100929
  Transmission Date: 20110411
  Serious: Yes (Death, Other)
  Sender: FDA-Public Use
  Company Number: JP-PFIZER INC-2010123359

PATIENT
  Age: 57 Year
  Sex: Male
  Weight: 75 kg

DRUGS (3)
  1. VIAGRA [Suspect]
     Indication: ERECTILE DYSFUNCTION
  2. ETHANOL [Suspect]
  3. METHAMPHETAMINE [Suspect]

REACTIONS (4)
  - AGITATION [None]
  - ARRHYTHMIA [None]
  - ASPHYXIA [None]
  - PSYCHOMOTOR HYPERACTIVITY [None]
